FAERS Safety Report 9216656 (Version 2)
Quarter: 2013Q2

REPORT INFORMATION
  Report Type: Spontaneous
  Country: US (occurrence: US)
  Receive Date: 20130408
  Receipt Date: 20130411
  Transmission Date: 20140414
  Serious: No
  Sender: FDA-Public Use
  Company Number: US-PFIZER INC-2013105538

PATIENT
  Age: 70 Year
  Sex: Female

DRUGS (2)
  1. XALKORI [Suspect]
     Indication: BREAST CANCER
     Dosage: 200 MG, IN AM
     Dates: start: 20130201
  2. XALKORI [Suspect]
     Indication: NON-SMALL CELL LUNG CANCER
     Dosage: 250 MG, IN PM

REACTIONS (1)
  - Hepatic enzyme increased [Recovering/Resolving]
